FAERS Safety Report 6725544-9 (Version None)
Quarter: 2010Q2

REPORT INFORMATION
  Report Type: 
  Country: None (occurrence: None)
  Receive Date: 20100514
  Receipt Date: 20100506
  Transmission Date: 20101027
  Serious: Yes (Hospitalization)
  Sender: FDA-Public Use
  Company Number: JP-SANOFI-AVENTIS-2010SA024483

PATIENT
  Age: 67 Year
  Sex: Male
  Weight: 51 kg

DRUGS (17)
  1. OXALIPLATIN [Suspect]
     Indication: RECTAL CANCER
     Route: 041
     Dates: start: 20091221, end: 20091221
  2. OXALIPLATIN [Suspect]
     Route: 041
     Dates: start: 20100412, end: 20100412
  3. CALCIUM LEVOFOLINATE [Suspect]
     Indication: RECTAL CANCER
     Route: 041
     Dates: start: 20091221, end: 20091221
  4. CALCIUM LEVOFOLINATE [Suspect]
     Route: 041
     Dates: start: 20100412, end: 20100412
  5. FLUOROURACIL [Suspect]
     Indication: RECTAL CANCER
     Route: 040
     Dates: start: 20091221, end: 20091221
  6. FLUOROURACIL [Suspect]
     Route: 041
     Dates: start: 20091221, end: 20091222
  7. FLUOROURACIL [Suspect]
     Route: 040
     Dates: start: 20100412, end: 20100412
  8. FLUOROURACIL [Suspect]
     Route: 041
     Dates: start: 20100412, end: 20100413
  9. AVASTIN [Suspect]
     Indication: RECTAL CANCER
     Route: 041
     Dates: start: 20091221, end: 20091221
  10. AVASTIN [Suspect]
     Route: 041
     Dates: start: 20100412, end: 20100412
  11. LOXOPROFEN [Suspect]
     Indication: ABDOMINAL PAIN
     Route: 048
     Dates: start: 20091119, end: 20100421
  12. AMLODIN [Concomitant]
     Indication: HYPERTENSION
     Route: 048
     Dates: start: 20100104, end: 20100421
  13. RIVOTRIL [Concomitant]
     Indication: NEUROPATHY PERIPHERAL
     Route: 048
     Dates: start: 20100215, end: 20100421
  14. BENZETHONIUM CHLORIDE [Concomitant]
     Indication: PERIODONTITIS
     Route: 002
     Dates: start: 20100215, end: 20100421
  15. HALCION [Concomitant]
     Indication: INSOMNIA
     Route: 048
     Dates: start: 20100315, end: 20100420
  16. GOSHAJINKIGAN [Concomitant]
     Indication: NEUROPATHY PERIPHERAL
  17. BUPRENORPHINE HCL [Concomitant]
     Indication: PAIN MANAGEMENT
     Route: 041
     Dates: start: 20100422, end: 20100424

REACTIONS (1)
  - DUODENAL ULCER PERFORATION [None]
